FAERS Safety Report 24568968 (Version 1)
Quarter: 2024Q4

REPORT INFORMATION
  Report Type: Spontaneous
  Country: US (occurrence: None)
  Receive Date: 20241030
  Receipt Date: 20241030
  Transmission Date: 20250115
  Serious: No
  Sender: Public
  Company Number: None

PATIENT
  Age: 35 Year
  Sex: Female
  Weight: 130.5 kg

DRUGS (6)
  1. COSENTYX [Suspect]
     Active Substance: SECUKINUMAB
     Indication: Hidradenitis
     Dosage: OTHER QUANTITY : 2 INJECTION(S);?OTHER FREQUENCY : ONCE EVERY 28 DAYS;?
     Route: 058
     Dates: start: 20240814
  2. Novolog insulin via Tandem T:Slim insulin pump [Concomitant]
  3. Dexcom G7 continuous glucose monitor [Concomitant]
  4. COSENTYX [Concomitant]
     Active Substance: SECUKINUMAB
  5. DOXYCYCLINE [Concomitant]
     Active Substance: DOXYCYCLINE
  6. SERTRALINE [Concomitant]
     Active Substance: SERTRALINE HYDROCHLORIDE

REACTIONS (2)
  - Weight increased [None]
  - Dry skin [None]

NARRATIVE: CASE EVENT DATE: 20241028
